FAERS Safety Report 9116405 (Version 1)
Quarter: 2013Q1

REPORT INFORMATION
  Report Type: Report from Study
  Country: FR (occurrence: FR)
  Receive Date: 20130225
  Receipt Date: 20130225
  Transmission Date: 20140127
  Serious: Yes (Hospitalization)
  Sender: FDA-Public Use
  Company Number: FR-ROCHE-1194222

PATIENT
  Age: 65 Year
  Sex: Female

DRUGS (22)
  1. TOCILIZUMAB [Suspect]
     Indication: RHEUMATOID ARTHRITIS
     Route: 042
     Dates: start: 20110816
  2. TOCILIZUMAB [Suspect]
     Route: 042
     Dates: start: 20110916
  3. TOCILIZUMAB [Suspect]
     Route: 042
     Dates: start: 20111014
  4. TOCILIZUMAB [Suspect]
     Route: 042
     Dates: start: 20111115
  5. TOCILIZUMAB [Suspect]
     Route: 042
     Dates: start: 20111213
  6. TOCILIZUMAB [Suspect]
     Route: 042
     Dates: start: 20120110
  7. TOCILIZUMAB [Suspect]
     Route: 042
     Dates: start: 20120207
  8. TOCILIZUMAB [Suspect]
     Route: 042
     Dates: start: 20120306
  9. TOCILIZUMAB [Suspect]
     Route: 042
     Dates: start: 20120403
  10. TOCILIZUMAB [Suspect]
     Route: 042
     Dates: start: 20120430
  11. TOCILIZUMAB [Suspect]
     Route: 042
     Dates: start: 20120529
  12. TOCILIZUMAB [Suspect]
     Route: 042
     Dates: start: 20120626
  13. TOCILIZUMAB [Suspect]
     Route: 042
     Dates: start: 20120724
  14. METHOTREXATE [Concomitant]
     Route: 065
  15. METHOTREXATE [Concomitant]
     Route: 065
     Dates: start: 20120724
  16. CORTANCYL [Concomitant]
     Route: 065
     Dates: start: 20110704
  17. DIAMICRON [Concomitant]
     Route: 065
  18. JANUMET [Concomitant]
     Dosage: 50MG/100 MG
     Route: 065
  19. SPECIAFOLDINE [Concomitant]
     Route: 065
  20. MOTILIUM (FRANCE) [Concomitant]
     Dosage: AS NEEDED
     Route: 065
  21. SMECTA [Concomitant]
     Route: 065
  22. SPASFON [Concomitant]
     Dosage: AS NEEDED
     Route: 065

REACTIONS (1)
  - Wrist fracture [Recovered/Resolved with Sequelae]
